FAERS Safety Report 4345197-7 (Version None)
Quarter: 2004Q2

REPORT INFORMATION
  Report Type: 
  Country: None (occurrence: None)
  Receive Date: 20040420
  Receipt Date: 20040407
  Transmission Date: 20050107
  Serious: Yes (Hospitalization, Disabling)
  Sender: FDA-Public Use
  Company Number: 2004024685

PATIENT
  Age: 89 Year
  Sex: Male

DRUGS (2)
  1. DOXAZOSIN MESLYLATE [Suspect]
     Indication: BENIGN PROSTATIC HYPERPLASIA
     Dosage: 4 MG (DAILY), ORAL
     Route: 048
     Dates: start: 20030601
  2. FINASTERIDE [Concomitant]

REACTIONS (3)
  - BEDRIDDEN [None]
  - CEREBRAL ISCHAEMIA [None]
  - HEMIPLEGIA [None]
